FAERS Safety Report 4562045-0 (Version None)
Quarter: 2005Q1

REPORT INFORMATION
  Report Type: 
  Country: None (occurrence: None)
  Receive Date: 20050125
  Receipt Date: 20050112
  Transmission Date: 20050727
  Serious: Yes (Death)
  Sender: FDA-Public Use
  Company Number: MK200501-0118-1

PATIENT
  Age: 20 Year
  Sex: Male

DRUGS (6)
  1. METHADOSE [Suspect]
     Indication: BACK PAIN
     Dosage: 10MG, TID, PO
     Route: 048
     Dates: end: 20040910
  2. LORTAB [Concomitant]
  3. CEPHALOSPOIN AND CONCERTA [Concomitant]
  4. SEROQUEL [Concomitant]
  5. CLOZAPINE [Concomitant]
  6. ADDERALL 5 [Concomitant]

REACTIONS (1)
  - IMPRISONMENT [None]
